FAERS Safety Report 9297967 (Version 1)
Quarter: 2013Q2

REPORT INFORMATION
  Report Type: Spontaneous
  Country: DE (occurrence: DE)
  Receive Date: 20130520
  Receipt Date: 20130520
  Transmission Date: 20140414
  Serious: Yes (Hospitalization)
  Sender: FDA-Public Use
  Company Number: DE-PFIZER INC-2013150317

PATIENT
  Age: 45 Year
  Sex: Female
  Weight: 61 kg

DRUGS (1)
  1. CARBOPLATIN [Suspect]
     Indication: OVARIAN CANCER
     Dosage: 304 MG, UNK
     Route: 042

REACTIONS (4)
  - Dizziness [Recovering/Resolving]
  - Flushing [Recovering/Resolving]
  - Hypersensitivity [Recovering/Resolving]
  - Vomiting [Recovering/Resolving]
